FAERS Safety Report 20924520 (Version 2)
Quarter: 2022Q2

REPORT INFORMATION
  Report Type: Spontaneous
  Country: US (occurrence: US)
  Receive Date: 20220607
  Receipt Date: 20220608
  Transmission Date: 20220721
  Serious: No
  Sender: FDA-Public Use
  Company Number: US-PFIZER INC-202200798098

PATIENT
  Age: 64 Year
  Sex: Female

DRUGS (3)
  1. PAXLOVID [Suspect]
     Active Substance: NIRMATRELVIR\RITONAVIR
     Indication: COVID-19 treatment
     Dosage: 6 DF, 3X/DAY (IT IS 3 TABLETS IN THE MORNING AND 3 TABLETS IN THE AFTERNOON)
     Dates: start: 2022
  2. TRIAMTERENE [Concomitant]
     Active Substance: TRIAMTERENE
     Indication: Hypertension
     Dosage: 1 DF, 1X/DAY (1 CAPSULE PER DAY)
  3. MELOXICAM [Concomitant]
     Active Substance: MELOXICAM
     Dosage: 1 DF, 1X/DAY (1 TABLET PER DAY)

REACTIONS (1)
  - Tongue discolouration [Unknown]

NARRATIVE: CASE EVENT DATE: 20220101
